FAERS Safety Report 8912753 (Version 1)
Quarter: 2012Q4

REPORT INFORMATION
  Report Type: 
  Country: PT (occurrence: PT)
  Receive Date: 20121116
  Receipt Date: 20121116
  Transmission Date: 20130627
  Serious: Yes (Other)
  Sender: FDA-Public Use
  Company Number: PT-ROCHE-1156425

PATIENT
  Age: 80 Year
  Sex: Female

DRUGS (2)
  1. ALTEPLASE [Suspect]
     Indication: CEREBRAL INFARCTION
     Route: 065
  2. CAPTOPRIL [Concomitant]

REACTIONS (4)
  - Anaphylactoid reaction [Recovered/Resolved]
  - Angioedema [Recovered/Resolved]
  - Respiratory distress [Recovered/Resolved]
  - Vomiting [Recovered/Resolved]
